FAERS Safety Report 14858590 (Version 2)
Quarter: 2019Q1

REPORT INFORMATION
  Report Type: Spontaneous
  Country: US (occurrence: US)
  Receive Date: 20180508
  Receipt Date: 20190328
  Transmission Date: 20190417
  Serious: Yes (Other)
  Sender: FDA-Public Use
  Company Number: US-ASTRAZENECA-2018SE49802

PATIENT
  Age: 16659 Day
  Sex: Male
  Weight: 144.2 kg

DRUGS (9)
  1. NEXIUM [Suspect]
     Active Substance: ESOMEPRAZOLE MAGNESIUM
     Route: 048
     Dates: start: 2006, end: 2016
  2. NEXIUM 24HR [Suspect]
     Active Substance: ESOMEPRAZOLE MAGNESIUM
     Route: 048
     Dates: start: 2006, end: 2016
  3. ZEMPLAR [Concomitant]
     Active Substance: PARICALCITOL
  4. FUROSEMIDE. [Concomitant]
     Active Substance: FUROSEMIDE
  5. VICTOZA [Concomitant]
     Active Substance: LIRAGLUTIDE
  6. ULORIC [Concomitant]
     Active Substance: FEBUXOSTAT
  7. TAMSULOSIN [Concomitant]
     Active Substance: TAMSULOSIN
  8. NIFEDIPINE. [Concomitant]
     Active Substance: NIFEDIPINE
  9. ALLOPURINOL. [Concomitant]
     Active Substance: ALLOPURINOL

REACTIONS (4)
  - Chronic kidney disease [Unknown]
  - Renal failure [Unknown]
  - End stage renal disease [Unknown]
  - Acute kidney injury [Unknown]

NARRATIVE: CASE EVENT DATE: 20130306
